FAERS Safety Report 5737182-5 (Version None)
Quarter: 2008Q2

REPORT INFORMATION
  Report Type: 
  Country: None (occurrence: None)
  Receive Date: 20080513
  Receipt Date: 20080513
  Transmission Date: 20081010
  Serious: Yes (Life-Threatening, Hospitalization, Other)
  Sender: FDA-Public Use
  Company Number: None

PATIENT
  Age: 39 Year
  Sex: Female
  Weight: 97.5234 kg

DRUGS (2)
  1. HUMIRA [Suspect]
     Dates: start: 20070301, end: 20071215
  2. METHOTREXATE [Suspect]

REACTIONS (7)
  - FINGER AMPUTATION [None]
  - GANGRENE [None]
  - NASOPHARYNGITIS [None]
  - PAIN IN EXTREMITY [None]
  - SEPSIS [None]
  - SKIN ULCER [None]
  - STREPTOCOCCAL INFECTION [None]
